FAERS Safety Report 4749703-X (Version None)
Quarter: 2005Q3

REPORT INFORMATION
  Report Type: 
  Country: None (occurrence: None)
  Receive Date: 20050822
  Receipt Date: 20050506
  Transmission Date: 20060218
  Serious: Yes (Hospitalization, Other)
  Sender: FDA-Public Use
  Company Number: US-MERCK-0505USA00885

PATIENT
  Age: 56 Year
  Sex: Female
  Weight: 48 kg

DRUGS (18)
  1. VIOXX [Suspect]
     Indication: OSTEOARTHRITIS
     Route: 048
     Dates: start: 20010821, end: 20040524
  2. VIOXX [Suspect]
     Route: 048
     Dates: start: 20010821, end: 20040524
  3. OXYBUTYNIN [Concomitant]
     Route: 065
  4. CLONAZEPAM [Concomitant]
     Route: 065
  5. ARICEPT [Concomitant]
     Route: 065
  6. LISINOPRIL [Concomitant]
     Route: 065
  7. OMEPRAZOLE [Concomitant]
     Route: 065
  8. OMEPRAZOLE [Concomitant]
     Route: 065
  9. PAXIL [Concomitant]
     Route: 065
  10. PAXIL [Concomitant]
     Route: 065
  11. TOPROL-XL [Concomitant]
     Route: 065
  12. NORVASC [Concomitant]
     Route: 065
  13. LIPITOR [Concomitant]
     Route: 065
  14. NORTRIPTYLINE [Concomitant]
     Route: 065
  15. LORCET-HD [Concomitant]
     Route: 065
  16. ATIVAN [Concomitant]
     Route: 065
  17. ESTRADIOL [Concomitant]
     Route: 065
  18. LIBRAX CAPSULES [Concomitant]
     Route: 065

REACTIONS (39)
  - ANAEMIA [None]
  - ASTHMA [None]
  - BACK INJURY [None]
  - BRAIN STEM INFARCTION [None]
  - BRONCHITIS ACUTE [None]
  - CELLULITIS [None]
  - CEREBROVASCULAR ACCIDENT [None]
  - CHOLELITHIASIS [None]
  - CHRONIC OBSTRUCTIVE PULMONARY DISEASE [None]
  - CLAVICLE FRACTURE [None]
  - CONTUSION [None]
  - DEHYDRATION [None]
  - DELIRIUM [None]
  - DEPRESSED LEVEL OF CONSCIOUSNESS [None]
  - DEPRESSION [None]
  - DRUG ABUSER [None]
  - DUODENAL ULCER, OBSTRUCTIVE [None]
  - FUNGAL INFECTION [None]
  - HAND FRACTURE [None]
  - HYPERKALAEMIA [None]
  - HYPOKALAEMIA [None]
  - INTESTINAL OBSTRUCTION [None]
  - MENTAL STATUS CHANGES [None]
  - MYOSITIS [None]
  - NAUSEA [None]
  - NECK INJURY [None]
  - NORMOCHROMIC NORMOCYTIC ANAEMIA [None]
  - OROPHARYNGEAL CANDIDIASIS [None]
  - PANCREATITIS CHRONIC [None]
  - PNEUMONIA [None]
  - PULMONARY HYPERTENSION [None]
  - RENAL FAILURE ACUTE [None]
  - RENAL TUBULAR ACIDOSIS [None]
  - RESPIRATORY FAILURE [None]
  - ROAD TRAFFIC ACCIDENT [None]
  - THYROID NEOPLASM [None]
  - UPPER GASTROINTESTINAL HAEMORRHAGE [None]
  - URINARY TRACT INFECTION [None]
  - VOMITING [None]
